FAERS Safety Report 15643782 (Version 2)
Quarter: 2018Q4

REPORT INFORMATION
  Report Type: Report from Study
  Country: US (occurrence: US)
  Receive Date: 20181121
  Receipt Date: 20181214
  Transmission Date: 20190205
  Serious: Yes (Hospitalization, Other)
  Sender: FDA-Public Use
  Company Number: US-BAYER-2018-208805

PATIENT
  Age: 58 Year
  Sex: Female

DRUGS (1)
  1. STIVARGA [Suspect]
     Active Substance: REGORAFENIB
     Indication: COLON CANCER
     Dosage: 80 MG DAILY FOR 21 DAYS THEN 7 DAYS OFF
     Route: 048
     Dates: start: 20181102, end: 20181116

REACTIONS (26)
  - Hypotension [None]
  - Diarrhoea [Not Recovered/Not Resolved]
  - Nausea [Recovering/Resolving]
  - Product dose omission [None]
  - Adverse event [None]
  - Disorientation [Recovering/Resolving]
  - Malaise [None]
  - Skin exfoliation [None]
  - Spinal compression fracture [Not Recovered/Not Resolved]
  - Blood pressure increased [Recovered/Resolved]
  - Fatigue [Not Recovered/Not Resolved]
  - Decreased appetite [Not Recovered/Not Resolved]
  - Pain of skin [Recovered/Resolved]
  - Dehydration [None]
  - Defaecation urgency [None]
  - Dysphonia [Not Recovered/Not Resolved]
  - Liver function test increased [None]
  - Vomiting [Recovering/Resolving]
  - Dehydration [None]
  - Hypoaesthesia [Not Recovered/Not Resolved]
  - Headache [Recovered/Resolved]
  - Off label use [None]
  - Pain of skin [Recovering/Resolving]
  - Pain in extremity [None]
  - Cervical radiculopathy [Recovering/Resolving]
  - Intentional dose omission [None]

NARRATIVE: CASE EVENT DATE: 2018
